FAERS Safety Report 24436819 (Version 2)
Quarter: 2025Q1

REPORT INFORMATION
  Report Type: Report from Study
  Country: US (occurrence: US)
  Receive Date: 20241015
  Receipt Date: 20250220
  Transmission Date: 20250408
  Serious: Yes (Hospitalization)
  Sender: ROCHE
  Company Number: US-ROCHE-10000105572

PATIENT
  Age: 75 Year
  Sex: Female
  Weight: 72.03 kg

DRUGS (14)
  1. OCREVUS [Suspect]
     Active Substance: OCRELIZUMAB
     Indication: Multiple sclerosis
     Dosage: DATES OF TREATMENT: 05/JAN/2023, 06/JUL/2023, 01/FEB/2024, 01/AUG/2024.
     Route: 040
  2. BUPROPION HYDROCHLORIDE [Concomitant]
     Active Substance: BUPROPION HYDROCHLORIDE
  3. BACLOFEN [Concomitant]
     Active Substance: BACLOFEN
  4. ROSUVASTATIN [Concomitant]
     Active Substance: ROSUVASTATIN
  5. VITAMIN B12 [Concomitant]
     Active Substance: CYANOCOBALAMIN
  6. OMEPRAZOLE [Concomitant]
     Active Substance: OMEPRAZOLE
  7. LEVOTHYROXINE [Concomitant]
     Active Substance: LEVOTHYROXINE
  8. VITAMIN D3 [Concomitant]
     Active Substance: CHOLECALCIFEROL
  9. GABAPENTIN [Concomitant]
     Active Substance: GABAPENTIN
  10. ALPRAZOLAM [Concomitant]
     Active Substance: ALPRAZOLAM
  11. BIOTIN [Concomitant]
     Active Substance: BIOTIN
  12. TECFIDERA [Concomitant]
     Active Substance: DIMETHYL FUMARATE
  13. METHYLPREDNISOLONE [Concomitant]
     Active Substance: METHYLPREDNISOLONE
     Route: 040
  14. TYLENOL [Concomitant]
     Active Substance: ACETAMINOPHEN

REACTIONS (25)
  - Food poisoning [Unknown]
  - COVID-19 [Recovered/Resolved]
  - Dry mouth [Not Recovered/Not Resolved]
  - Chapped lips [Not Recovered/Not Resolved]
  - Lip blister [Not Recovered/Not Resolved]
  - Headache [Unknown]
  - Diplopia [Unknown]
  - Arteritis [Unknown]
  - Joint swelling [Unknown]
  - Pain in extremity [Unknown]
  - Vitamin D deficiency [Unknown]
  - Sciatica [Unknown]
  - Lumbar spinal stenosis [Unknown]
  - Paraesthesia [Unknown]
  - Concussion [Unknown]
  - Urinary tract infection [Unknown]
  - Hypoaesthesia [Unknown]
  - Constipation [Unknown]
  - Dry skin [Unknown]
  - Seizure [Unknown]
  - Fall [Unknown]
  - Myalgia [Unknown]
  - Balance disorder [Unknown]
  - Asthenia [Unknown]
  - Joint stiffness [Unknown]

NARRATIVE: CASE EVENT DATE: 20220501
